FAERS Safety Report 24604593 (Version 2)
Quarter: 2024Q4

REPORT INFORMATION
  Report Type: Spontaneous
  Country: FR (occurrence: FR)
  Receive Date: 20241111
  Receipt Date: 20241127
  Transmission Date: 20250114
  Serious: Yes (Hospitalization)
  Sender: MYLAN
  Company Number: FR-DEAQVIDAP-20240102

PATIENT
  Age: 69 Year
  Sex: Male
  Weight: 98 kg

DRUGS (8)
  1. PREDNISONE [Suspect]
     Active Substance: PREDNISONE
     Indication: Hormone-refractory prostate cancer
     Dosage: 5 MILLIGRAM, QD
     Route: 048
     Dates: start: 20240426, end: 20241008
  2. DOCETAXEL [Suspect]
     Active Substance: DOCETAXEL
     Indication: Hormone-refractory prostate cancer
     Dosage: Q3W, CYCLE 1
     Route: 042
     Dates: start: 20240426, end: 20240426
  3. DOCETAXEL [Suspect]
     Active Substance: DOCETAXEL
     Dosage: CYCLE 8
     Route: 042
     Dates: start: 20240920, end: 20240920
  4. TRIPTORELIN [Concomitant]
     Active Substance: TRIPTORELIN
     Dosage: UNK
     Route: 065
  5. PRAVASTATIN [Concomitant]
     Active Substance: PRAVASTATIN
     Indication: Hypercholesterolaemia
     Dosage: UNK
     Route: 065
  6. ECONAZOLE [Concomitant]
     Active Substance: ECONAZOLE
     Dosage: UNK
     Route: 065
     Dates: start: 20240518
  7. BETAMETHASONE [Concomitant]
     Active Substance: BETAMETHASONE
     Dosage: UNK
     Route: 065
     Dates: start: 20240518
  8. FOSFOMYCIN [Concomitant]
     Active Substance: FOSFOMYCIN
     Indication: Urinary tract infection
     Dosage: UNK
     Route: 065
     Dates: start: 20240627

REACTIONS (1)
  - Haematuria [Recovered/Resolved]

NARRATIVE: CASE EVENT DATE: 20241004
